FAERS Safety Report 6574429-X (Version None)
Quarter: 2010Q1

REPORT INFORMATION
  Report Type: 
  Country: None (occurrence: None)
  Receive Date: 20100209
  Receipt Date: 20100204
  Transmission Date: 20100710
  Serious: Yes (Other)
  Sender: FDA-Public Use
  Company Number: US-ASTRAZENECA-2009SE17836

PATIENT
  Age: 564 Month
  Sex: Female

DRUGS (7)
  1. SEROQUEL [Suspect]
     Indication: SCHIZOAFFECTIVE DISORDER
     Route: 048
     Dates: start: 20030101
  2. SEROQUEL [Suspect]
     Indication: SCHIZOPHRENIA
     Route: 048
     Dates: start: 20030101
  3. ABILIFY [Concomitant]
     Dates: start: 20090101
  4. GEODON [Concomitant]
     Dates: start: 20080101
  5. HALDOL [Concomitant]
     Dates: start: 20090501
  6. ZYPREXA [Concomitant]
     Dates: start: 20000101
  7. DEXATRIM [Concomitant]
     Indication: OBESITY
     Dates: start: 19770101, end: 19800101

REACTIONS (3)
  - DIABETIC COMA [None]
  - DIABETIC FOOT [None]
  - TYPE 2 DIABETES MELLITUS [None]
